FAERS Safety Report 6354138-2 (Version None)
Quarter: 2009Q3

REPORT INFORMATION
  Report Type: 
  Country: None (occurrence: None)
  Receive Date: 20090914
  Receipt Date: 20090908
  Transmission Date: 20100115
  Serious: Yes (Other)
  Sender: FDA-Public Use
  Company Number: US-ASTRAZENECA-2009UW13310

PATIENT
  Age: 18506 Day
  Sex: Male
  Weight: 102.1 kg

DRUGS (3)
  1. SEROQUEL [Suspect]
     Indication: POST-TRAUMATIC STRESS DISORDER
     Route: 048
     Dates: start: 20060525
  2. THORAZINE [Concomitant]
     Dates: start: 20040101, end: 20040301
  3. CITALOPRAM HYDROBROMIDE [Concomitant]

REACTIONS (4)
  - ANGINA PECTORIS [None]
  - DIABETES MELLITUS [None]
  - RENAL DISORDER [None]
  - TYPE 2 DIABETES MELLITUS [None]
